FAERS Safety Report 5905939-3 (Version None)
Quarter: 2008Q4

REPORT INFORMATION
  Report Type: 
  Country: None (occurrence: None)
  Receive Date: 20081002
  Receipt Date: 20080930
  Transmission Date: 20090506
  Serious: Yes (Death)
  Sender: FDA-Public Use
  Company Number: US-ASTRAZENECA-2008UW15540

PATIENT
  Age: 17869 Day
  Sex: Female

DRUGS (5)
  1. SEROQUEL [Suspect]
     Indication: BIPOLAR DISORDER
     Dosage: 100MG PER DAY, 30MG BID, UP TO 700MG PER DAY
     Route: 048
     Dates: start: 20031111, end: 20060816
  2. FLUPHENAZINE [Concomitant]
     Dates: start: 20050403, end: 20050802
  3. LITHIUM [Concomitant]
     Dates: start: 20060420, end: 20060517
  4. HYDROCODONE BITARTRATE [Concomitant]
  5. CARBAMAZEPINE [Concomitant]

REACTIONS (3)
  - ARTHRALGIA [None]
  - DIABETIC CARDIOMYOPATHY [None]
  - HALLUCINATION [None]
